FAERS Safety Report 21778882 (Version 2)
Quarter: 2023Q1

REPORT INFORMATION
  Report Type: Spontaneous
  Country: US (occurrence: US)
  Receive Date: 20221226
  Receipt Date: 20230103
  Transmission Date: 20230418
  Serious: No
  Sender: FDA-Public Use
  Company Number: US-BAYER-2022P030754

PATIENT
  Age: 54 Year
  Sex: Male
  Weight: 39.916 kg

DRUGS (1)
  1. GADOBUTROL [Suspect]
     Active Substance: GADOBUTROL
     Indication: Magnetic resonance imaging
     Dosage: 9 ML, ONCE
     Route: 042
     Dates: start: 20221217, end: 20221217

REACTIONS (4)
  - Throat irritation [None]
  - Scratch [None]
  - Contrast media allergy [None]
  - Cough [None]

NARRATIVE: CASE EVENT DATE: 20221217
